FAERS Safety Report 7866831-0 (Version None)
Quarter: 2011Q4

REPORT INFORMATION
  Report Type: 
  Country: None (occurrence: None)
  Receive Date: 20111028
  Receipt Date: 20110831
  Transmission Date: 20120403
  Serious: No
  Sender: FDA-Public Use
  Company Number: US-GLAXOSMITHKLINE-A0943009A

PATIENT
  Age: 68 Year
  Sex: Male

DRUGS (8)
  1. DIGOXIN [Concomitant]
  2. ALLEGRA [Concomitant]
  3. SINGULAIR [Concomitant]
  4. ADVAIR DISKUS 100/50 [Suspect]
     Indication: ASTHMA
     Dosage: 1PUFF TWICE PER DAY
     Route: 055
  5. METOPROLOL TARTRATE [Concomitant]
  6. WARFARIN SODIUM [Concomitant]
  7. ALBUTEROL [Concomitant]
  8. LEVOXYL [Concomitant]

REACTIONS (7)
  - PRODUCTIVE COUGH [None]
  - DYSPHONIA [None]
  - COUGH [None]
  - DRY THROAT [None]
  - THROAT IRRITATION [None]
  - NASAL CONGESTION [None]
  - PRODUCT QUALITY ISSUE [None]
